FAERS Safety Report 9862048 (Version 1)
Quarter: 2014Q1

REPORT INFORMATION
  Report Type: Spontaneous
  Country: IT (occurrence: IT)
  Receive Date: 20140203
  Receipt Date: 20140203
  Transmission Date: 20141002
  Serious: Yes (Hospitalization)
  Sender: FDA-Public Use
  Company Number: IT-JNJFOC-20140113946

PATIENT
  Age: 70 Year
  Sex: Female

DRUGS (12)
  1. CAELYX [Suspect]
     Indication: OVARIAN CANCER
     Route: 042
     Dates: start: 20131030, end: 20131211
  2. DEXAMETHASONE [Concomitant]
     Route: 042
  3. ONDANSETRON [Concomitant]
     Route: 042
  4. CHLORPHENAMINE MALEATE [Concomitant]
     Route: 042
  5. LEVOTHYROXINE [Concomitant]
     Route: 065
  6. ACETYLSALICYLIC  ACID [Concomitant]
     Route: 048
  7. AMILORIDE HYDROCHLORIDE W/HYDROCHLOROTHIAZIDE [Concomitant]
     Route: 065
  8. ATENOLOL [Concomitant]
     Route: 048
  9. LANSOPRAZOLE [Concomitant]
     Route: 048
  10. BROMAZEPAM [Concomitant]
     Route: 048
  11. FERROUS SULFATE [Concomitant]
     Route: 048
  12. TARGIN [Concomitant]
     Route: 065

REACTIONS (1)
  - Toxic skin eruption [Recovering/Resolving]
